FAERS Safety Report 4641461-2 (Version None)
Quarter: 2005Q2

REPORT INFORMATION
  Report Type: 
  Country: None (occurrence: None)
  Receive Date: 20050421
  Receipt Date: 20050415
  Transmission Date: 20051028
  Serious: Yes (Other)
  Sender: FDA-Public Use
  Company Number: PHEH2005US04362

PATIENT
  Age: 38 Year
  Sex: Male

DRUGS (1)
  1. DIOVAN [Suspect]
     Indication: HYPERTENSION
     Dosage: 160 MG, QD
     Route: 048
     Dates: start: 20050101, end: 20050315

REACTIONS (5)
  - ANXIETY [None]
  - DIZZINESS [None]
  - HEART RATE INCREASED [None]
  - NERVOUSNESS [None]
  - PANIC ATTACK [None]
